FAERS Safety Report 6224226-X (Version None)
Quarter: 2009Q2

REPORT INFORMATION
  Report Type: 
  Country: None (occurrence: None)
  Receive Date: 20090612
  Receipt Date: 20090311
  Transmission Date: 20091009
  Serious: No
  Sender: FDA-Public Use
  Company Number: US-ABBOTT-09P-163-0562283-00

PATIENT
  Sex: Female
  Weight: 59.02 kg

DRUGS (5)
  1. HUMIRA [Suspect]
     Indication: PSORIASIS
     Route: 058
     Dates: start: 20090216, end: 20090216
  2. HUMIRA [Suspect]
     Dosage: DAY 8 AND 21, THEN EOW
     Route: 058
     Dates: start: 20090224
  3. GABAPENTIN [Concomitant]
     Indication: NEUROPATHY PERIPHERAL
     Route: 048
  4. IMIPRAMINE [Concomitant]
     Indication: HYPOAESTHESIA
     Route: 048
  5. IMIPRAMINE [Concomitant]
     Indication: PARAESTHESIA

REACTIONS (2)
  - ACCIDENTAL OVERDOSE [None]
  - MIGRAINE [None]
